FAERS Safety Report 20992365 (Version 1)
Quarter: 2022Q2

REPORT INFORMATION
  Report Type: Spontaneous
  Country: US (occurrence: US)
  Receive Date: 20220622
  Receipt Date: 20220622
  Transmission Date: 20220721
  Serious: No
  Sender: FDA-Public Use
  Company Number: US-BRISTOL-MYERS SQUIBB COMPANY-2022-056361

PATIENT
  Age: 60 Year
  Sex: Female

DRUGS (1)
  1. REVLIMID [Suspect]
     Active Substance: LENALIDOMIDE
     Indication: Plasma cell myeloma
     Dosage: FREQUENCY : TAKE 1 CAPSULE BY MOUTH FOR  21 DAYS IN A28 DAYS CYCLE.
     Route: 048
     Dates: start: 20211103

REACTIONS (3)
  - Nasopharyngitis [Unknown]
  - Asthma [Unknown]
  - Product prescribing issue [Unknown]
